FAERS Safety Report 9130828 (Version 1)
Quarter: 2013Q1

REPORT INFORMATION
  Report Type: Spontaneous
  Country: GB (occurrence: GB)
  Receive Date: 20130301
  Receipt Date: 20130301
  Transmission Date: 20140127
  Serious: Yes (Hospitalization)
  Sender: FDA-Public Use
  Company Number: GB-PFIZER INC-2013067627

PATIENT
  Age: 45 Year
  Sex: Female
  Weight: 50 kg

DRUGS (6)
  1. CYTARABINE [Suspect]
     Indication: ACUTE MYELOID LEUKAEMIA
     Dosage: 150 MG, 2X/DAY
     Route: 042
     Dates: start: 20130116, end: 20130125
  2. ACICLOVIR [Concomitant]
     Indication: ANTIVIRAL PROPHYLAXIS
     Dosage: 200 MG, 4X/DAY
     Route: 048
     Dates: start: 20130119
  3. ALLOPURINOL [Concomitant]
     Indication: TUMOUR LYSIS SYNDROME
     Dosage: 300 MG, 1X/DAY
     Route: 048
     Dates: start: 20130113, end: 20130121
  4. ONDANSETRON [Concomitant]
     Indication: NAUSEA
     Dosage: 8 MG, 2X/DAY
     Route: 048
     Dates: start: 20130117, end: 20130121
  5. MEROPENEM [Concomitant]
     Indication: INFECTION PROPHYLAXIS
     Dosage: 1 G, 3X/DAY
     Route: 042
     Dates: start: 20130119, end: 20130128
  6. VANCOMYCIN [Concomitant]
     Indication: INFECTION PROPHYLAXIS
     Dosage: 1 G, 2X/DAY
     Route: 042
     Dates: start: 20130119, end: 20130131

REACTIONS (3)
  - Rash maculo-papular [Recovering/Resolving]
  - Rash pruritic [Recovering/Resolving]
  - Folliculitis [Recovering/Resolving]
